FAERS Safety Report 11044929 (Version 2)
Quarter: 2015Q2

REPORT INFORMATION
  Report Type: Spontaneous
  Country: CA (occurrence: CA)
  Receive Date: 20150417
  Receipt Date: 20150417
  Transmission Date: 20150821
  Serious: Yes (Death, Hospitalization)
  Sender: FDA-Public Use
  Company Number: PHHY2015CA044211

PATIENT
  Age: 64 Year
  Sex: Male

DRUGS (5)
  1. TACROLIMUS. [Suspect]
     Active Substance: TACROLIMUS
     Indication: IMMUNOSUPPRESSION
     Route: 065
  2. CEFAZOLIN [Concomitant]
     Active Substance: CEFAZOLIN
     Indication: PROPHYLAXIS
     Route: 065
  3. AZATHIOPRINE. [Suspect]
     Active Substance: AZATHIOPRINE
     Indication: IMMUNOSUPPRESSION
     Route: 065
  4. BASILIXIMAB [Suspect]
     Active Substance: BASILIXIMAB
     Indication: IMMUNOSUPPRESSION
     Route: 065
  5. METHYLPREDNISOLONE. [Suspect]
     Active Substance: METHYLPREDNISOLONE
     Indication: IMMUNOSUPPRESSION
     Route: 065

REACTIONS (15)
  - Herpes simplex hepatitis [Unknown]
  - Hepatic enzyme increased [Unknown]
  - Lymphopenia [Unknown]
  - General physical health deterioration [Unknown]
  - Abdominal pain [Unknown]
  - Encephalopathy [Unknown]
  - Bronchopulmonary aspergillosis [Unknown]
  - Multi-organ failure [Fatal]
  - Nervous system disorder [Unknown]
  - Renal failure [Unknown]
  - Circulatory collapse [Unknown]
  - Leukopenia [Unknown]
  - Hepatic failure [Unknown]
  - Abscess [Unknown]
  - Disseminated intravascular coagulation [Unknown]
